FAERS Safety Report 9343695 (Version 1)
Quarter: 2013Q2

REPORT INFORMATION
  Report Type: Spontaneous
  Country: JP (occurrence: JP)
  Receive Date: 20130612
  Receipt Date: 20130612
  Transmission Date: 20140414
  Serious: Yes (Hospitalization)
  Sender: FDA-Public Use
  Company Number: PHHY2013JP059159

PATIENT
  Sex: 0

DRUGS (3)
  1. VOLTAREN [Suspect]
     Indication: CANCER PAIN
     Dosage: 50 MG, DAILY
     Route: 054
  2. LOXONIN [Concomitant]
  3. OXYCONTIN [Concomitant]
     Route: 048

REACTIONS (1)
  - Incorrect dose administered [Unknown]
